FAERS Safety Report 24552881 (Version 1)
Quarter: 2024Q4

REPORT INFORMATION
  Report Type: Spontaneous
  Country: BR (occurrence: BR)
  Receive Date: 20241027
  Receipt Date: 20241027
  Transmission Date: 20250115
  Serious: Yes (Death)
  Sender: GENMAB
  Company Number: BR-ABBVIE-5977418

PATIENT
  Sex: Male

DRUGS (1)
  1. EPCORITAMAB [Suspect]
     Active Substance: EPCORITAMAB
     Indication: Diffuse large B-cell lymphoma
     Dosage: UNK
     Route: 058

REACTIONS (3)
  - Gastrointestinal disorder [Fatal]
  - Procedural complication [Fatal]
  - Diffuse large B-cell lymphoma [Fatal]

NARRATIVE: CASE EVENT DATE: 20241001
